FAERS Safety Report 13770564 (Version 7)
Quarter: 2017Q4

REPORT INFORMATION
  Report Type: Report from Study
  Country: BE (occurrence: BE)
  Receive Date: 20170719
  Receipt Date: 20171020
  Transmission Date: 20180320
  Serious: Yes (Death, Hospitalization, Other)
  Sender: FDA-Public Use
  Company Number: BE-BAYER-2017-098758

PATIENT
  Sex: Male

DRUGS (8)
  1. PANTOPRAZOLE SODIUM. [Concomitant]
     Active Substance: PANTOPRAZOLE SODIUM
     Dosage: 40 MG, UNK
  2. STIVARGA [Suspect]
     Active Substance: REGORAFENIB
     Indication: METASTASES TO BLADDER
     Dosage: DAILY DOSE 120 MG
     Route: 048
     Dates: start: 20170717, end: 20171002
  3. LENDORMIN [Concomitant]
     Active Substance: BROTIZOLAM
     Dosage: 0.250 MG, DAILY
     Dates: start: 20170830
  4. STIVARGA [Suspect]
     Active Substance: REGORAFENIB
     Indication: METASTASES TO PROSTATE
     Dosage: DAILY DOSE 120 MG
     Route: 048
     Dates: start: 2017, end: 2017
  5. STIVARGA [Suspect]
     Active Substance: REGORAFENIB
     Indication: METASTASES TO LUNG
  6. EMCONCOR MITIS [Concomitant]
     Dosage: 5 MG, UNK
  7. LYRICA [Concomitant]
     Active Substance: PREGABALIN
     Dosage: 75 MG, BID
  8. STIVARGA [Suspect]
     Active Substance: REGORAFENIB
     Indication: COLORECTAL CANCER STAGE IV
     Dosage: DAILY DOSE 80 MG
     Route: 048
     Dates: start: 20170515, end: 201705

REACTIONS (36)
  - Dyspnoea exertional [Not Recovered/Not Resolved]
  - Arthralgia [Recovered/Resolved]
  - Muscle spasms [None]
  - Decreased appetite [None]
  - Dyspnoea [None]
  - Carcinoembryonic antigen increased [Unknown]
  - Anal abscess [None]
  - Nausea [None]
  - Fatigue [None]
  - Post procedural haemorrhage [Recovered/Resolved]
  - Vomiting [None]
  - Malaise [Fatal]
  - Limb discomfort [None]
  - Abnormal faeces [None]
  - Weight decreased [None]
  - Dysphonia [None]
  - Hospitalisation [None]
  - Pulmonary embolism [Unknown]
  - Rectal discharge [None]
  - Muscular weakness [None]
  - Dysphonia [None]
  - Paraneoplastic syndrome [Unknown]
  - Poor quality sleep [Recovered/Resolved]
  - Neuralgia [None]
  - Inflammation [Recovered/Resolved]
  - Gait disturbance [None]
  - Fall [None]
  - Poor quality sleep [None]
  - Pulmonary thrombosis [None]
  - Metastases to lung [Unknown]
  - Proctalgia [None]
  - Stoma site discharge [None]
  - Balance disorder [None]
  - Abdominal distension [None]
  - Dysphonia [Not Recovered/Not Resolved]
  - Arthralgia [Not Recovered/Not Resolved]

NARRATIVE: CASE EVENT DATE: 2017
